FAERS Safety Report 6734497-9 (Version None)
Quarter: 2010Q2

REPORT INFORMATION
  Report Type: 
  Country: None (occurrence: None)
  Receive Date: 20100520
  Receipt Date: 20100507
  Transmission Date: 20101027
  Serious: Yes (Disabling, Other)
  Sender: FDA-Public Use
  Company Number: US-ELI_LILLY_AND_COMPANY-US201004001703

PATIENT
  Sex: Female
  Weight: 73.469 kg

DRUGS (7)
  1. FORTEO [Suspect]
     Indication: OSTEOPOROSIS
     Dosage: 20 UG, DAILY (1/D)
     Dates: start: 20100101
  2. SYNTHROID [Concomitant]
  3. METHYLDOPA [Concomitant]
  4. KLOR-CON [Concomitant]
  5. ZYRTEC [Concomitant]
  6. CALCIUM WITH VITAMIN D [Concomitant]
  7. HYDROCHLOROTHIAZIDE [Concomitant]

REACTIONS (8)
  - BACK INJURY [None]
  - BACK PAIN [None]
  - CONTUSION [None]
  - FALL [None]
  - HEAD INJURY [None]
  - INJECTION SITE HAEMATOMA [None]
  - MUSCULOSKELETAL DISCOMFORT [None]
  - THORACIC VERTEBRAL FRACTURE [None]
